FAERS Safety Report 8554742-7 (Version None)
Quarter: 2012Q3

REPORT INFORMATION
  Report Type: 
  Country: None (occurrence: None)
  Receive Date: 20120731
  Receipt Date: 20120726
  Transmission Date: 20120928
  Serious: Yes (Other)
  Sender: FDA-Public Use
  Company Number: JP-JNJFOC-20120604680

PATIENT
  Sex: Female
  Weight: 35 kg

DRUGS (11)
  1. PRANLUKAST [Concomitant]
     Route: 048
  2. METHOTREXATE [Concomitant]
     Indication: RHEUMATOID ARTHRITIS
  3. METHYLPREDNISOLONE [Concomitant]
     Indication: RHEUMATOID ARTHRITIS
     Route: 048
  4. SODIUM RISEDRONATE [Concomitant]
     Route: 048
  5. POLAPREZINC [Concomitant]
     Indication: PROPHYLAXIS
     Route: 048
  6. SIMPONI [Suspect]
     Route: 058
     Dates: start: 20120410
  7. RABEPRAZOLE SODIUM [Concomitant]
     Indication: PROPHYLAXIS
     Route: 048
  8. ESTAZOLAM [Concomitant]
     Route: 048
  9. BUCILLAMINE [Concomitant]
     Indication: RHEUMATOID ARTHRITIS
     Route: 048
  10. SIMPONI [Suspect]
     Indication: RHEUMATOID ARTHRITIS
     Route: 058
     Dates: start: 20120508
  11. MOSAPRIDE CITRATE [Concomitant]
     Indication: PROPHYLAXIS
     Route: 048

REACTIONS (1)
  - ASTHMA [None]
